FAERS Safety Report 14551709 (Version 2)
Quarter: 2018Q1

REPORT INFORMATION
  Report Type: Spontaneous
  Country: US (occurrence: US)
  Receive Date: 20180220
  Receipt Date: 20180322
  Transmission Date: 20180509
  Serious: Yes (Other)
  Sender: FDA-Public Use
  Company Number: US-GILEAD-2018-0321476

PATIENT
  Sex: Female
  Weight: 76.9 kg

DRUGS (8)
  1. AMITRIPTYLINE [Concomitant]
     Active Substance: AMITRIPTYLINE
  2. LITHIUM CARBONATE. [Concomitant]
     Active Substance: LITHIUM CARBONATE
  3. QUETIAPINE. [Concomitant]
     Active Substance: QUETIAPINE
  4. EPCLUSA [Suspect]
     Active Substance: SOFOSBUVIR\VELPATASVIR
     Indication: HEPATITIS C VIRUS TEST POSITIVE
     Dosage: UNK
     Route: 065
  5. LEVEMIR [Concomitant]
     Active Substance: INSULIN DETEMIR
  6. VITAMIN D2 [Concomitant]
     Active Substance: ERGOCALCIFEROL
  7. METOPROLOL. [Concomitant]
     Active Substance: METOPROLOL
  8. NOVOLOG [Concomitant]
     Active Substance: INSULIN ASPART

REACTIONS (2)
  - Hepatitis C virus test positive [Not Recovered/Not Resolved]
  - Hepatic failure [Not Recovered/Not Resolved]
